FAERS Safety Report 10035867 (Version 3)
Quarter: 2014Q2

REPORT INFORMATION
  Report Type: Spontaneous
  Country: US (occurrence: US)
  Receive Date: 20140325
  Receipt Date: 20140602
  Transmission Date: 20141212
  Serious: Yes (Other)
  Sender: FDA-Public Use
  Company Number: US-PFIZER INC-2014081299

PATIENT
  Age: 64 Year
  Sex: Female
  Weight: 66.21 kg

DRUGS (1)
  1. XALATAN [Suspect]
     Indication: GLAUCOMA
     Dosage: UNK, BOTH EYES DAILY
     Route: 047
     Dates: start: 2010

REACTIONS (2)
  - Nervous system disorder [Unknown]
  - Eye pain [Unknown]
